FAERS Safety Report 5522915-3 (Version None)
Quarter: 2007Q4

REPORT INFORMATION
  Report Type: 
  Country: None (occurrence: None)
  Receive Date: 20071116
  Receipt Date: 20071107
  Transmission Date: 20080405
  Serious: No
  Sender: FDA-Public Use
  Company Number: 33930

PATIENT
  Age: 56 Year
  Sex: Female

DRUGS (3)
  1. NEVANAC [Suspect]
     Indication: PROPHYLAXIS
     Dosage: (OPHT OPHTHALMIC)
     Route: 047
  2. ECONOPRED PLUS [Concomitant]
  3. VIGAMOX [Concomitant]

REACTIONS (2)
  - CORNEAL TRANSPLANT [None]
  - ULCERATIVE KERATITIS [None]
